FAERS Safety Report 25815472 (Version 1)
Quarter: 2025Q3

REPORT INFORMATION
  Report Type: Spontaneous
  Country: US (occurrence: US)
  Receive Date: 20250918
  Receipt Date: 20250918
  Transmission Date: 20251020
  Serious: Yes (Other)
  Sender: COOPERSURGICAL
  Company Number: US-COOPERSURGICAL, INC.-2025CPS006634

PATIENT
  Age: 41 Year
  Sex: Female
  Weight: 105.22 kg

DRUGS (2)
  1. PARAGARD T 380A [Suspect]
     Active Substance: COPPER
     Indication: Contraception
     Route: 015
     Dates: start: 200802
  2. NEXPLANON [Suspect]
     Active Substance: ETONOGESTREL
     Indication: Contraception
     Route: 059
     Dates: start: 20180323, end: 20180508

REACTIONS (10)
  - Iron deficiency anaemia [Recovering/Resolving]
  - Device breakage [Recovered/Resolved]
  - Foreign body in reproductive tract [Recovered/Resolved]
  - Complication of device removal [Recovered/Resolved]
  - Embedded device [Recovered/Resolved]
  - Heavy menstrual bleeding [Recovered/Resolved]
  - Abnormal uterine bleeding [Recovered/Resolved]
  - Emotional distress [Not Recovered/Not Resolved]
  - Post procedural haemorrhage [Recovered/Resolved]
  - Discomfort [Unknown]

NARRATIVE: CASE EVENT DATE: 20170730
